FAERS Safety Report 4294768-5 (Version None)
Quarter: 2004Q1

REPORT INFORMATION
  Report Type: 
  Country: None (occurrence: None)
  Receive Date: 20040213
  Receipt Date: 20040206
  Transmission Date: 20041129
  Serious: Yes (Other)
  Sender: FDA-Public Use
  Company Number: WAES 0402SWE00005

PATIENT
  Age: 67 Year
  Sex: Female

DRUGS (3)
  1. FOSAMAX [Suspect]
     Indication: OSTEOPOROSIS
     Route: 048
     Dates: start: 20020101
  2. CALCIUM CARBONATE AND CHOLECALCIFEROL [Suspect]
     Indication: OSTEOPOROSIS
     Route: 048
     Dates: start: 20020101
  3. TRIMETHOPRIM [Suspect]
     Indication: URINARY TRACT INFECTION
     Route: 048
     Dates: start: 20031108, end: 20031114

REACTIONS (1)
  - RETINAL VEIN OCCLUSION [None]
